FAERS Safety Report 5364182-X (Version None)
Quarter: 2007Q2

REPORT INFORMATION
  Report Type: 
  Country: None (occurrence: None)
  Receive Date: 20070620
  Receipt Date: 20070608
  Transmission Date: 20071010
  Serious: Yes (Other)
  Sender: FDA-Public Use
  Company Number: US-PFIZER INC-2007047968

PATIENT
  Sex: Male
  Weight: 86.2 kg

DRUGS (6)
  1. NEURONTIN [Suspect]
     Indication: SPINAL CORD INJURY
  2. NEURONTIN [Suspect]
     Indication: NEUROPATHY
  3. NEURONTIN [Suspect]
     Indication: SURGERY
  4. HYDROCODONE BITARTRATE [Concomitant]
  5. LOTREL [Concomitant]
  6. CLONIDINE [Concomitant]

REACTIONS (6)
  - EATING DISORDER [None]
  - GINGIVAL BLEEDING [None]
  - TOOTH ABSCESS [None]
  - TOOTH DISORDER [None]
  - TOOTH LOSS [None]
  - WEIGHT DECREASED [None]
